FAERS Safety Report 4574992-4 (Version None)
Quarter: 2005Q1

REPORT INFORMATION
  Report Type: 
  Country: None (occurrence: None)
  Receive Date: 20050208
  Receipt Date: 20041109
  Transmission Date: 20050727
  Serious: Yes (Hospitalization)
  Sender: FDA-Public Use
  Company Number: US-ROCHE-386014

PATIENT
  Age: 68 Year
  Sex: Female

DRUGS (3)
  1. PEGASYS [Suspect]
     Indication: HEPATITIS C
     Route: 058
     Dates: start: 20040925, end: 20041105
  2. COPEGUS [Suspect]
     Indication: HEPATITIS C
     Route: 048
     Dates: start: 20040925, end: 20041105
  3. ATACAND [Concomitant]
     Indication: HYPERTENSION
     Dosage: DRUG STRENGTH REPORTED AS 16-25 MG PER TABLET.
     Route: 048

REACTIONS (7)
  - BLOOD PRESSURE INCREASED [None]
  - CARDIAC DISORDER [None]
  - CHEST DISCOMFORT [None]
  - CHEST PAIN [None]
  - FATIGUE [None]
  - HEART RATE INCREASED [None]
  - THROMBOSIS [None]
